FAERS Safety Report 23581270 (Version 1)
Quarter: 2024Q1

REPORT INFORMATION
  Report Type: Spontaneous
  Country: US (occurrence: US)
  Receive Date: 20240229
  Receipt Date: 20240229
  Transmission Date: 20240409
  Serious: No
  Sender: FDA-Public Use
  Company Number: US-TEVA-VS-3141695

PATIENT
  Age: 25 Year
  Sex: Male

DRUGS (1)
  1. QNASL [Suspect]
     Active Substance: BECLOMETHASONE DIPROPIONATE
     Dosage: NASAL AEROSOL
     Route: 045

REACTIONS (3)
  - Device delivery system issue [Unknown]
  - Hypersensitivity [Unknown]
  - Asthma [Unknown]
